FAERS Safety Report 7209422-7 (Version None)
Quarter: 2011Q1

REPORT INFORMATION
  Report Type: 
  Country: None (occurrence: None)
  Receive Date: 20110104
  Receipt Date: 20101227
  Transmission Date: 20110831
  Serious: Yes (Other)
  Sender: FDA-Public Use
  Company Number: US-ABBOTT-10P-163-0694262-00

PATIENT
  Sex: Male
  Weight: 99.426 kg

DRUGS (12)
  1. LEVOTHYROXINE [Concomitant]
     Indication: PRODUCT USED FOR UNKNOWN INDICATION
  2. SIMCOR [Suspect]
     Indication: HYPERLIPIDAEMIA
     Dosage: 500/40 MG
     Dates: start: 20101001
  3. LEXAPRO [Concomitant]
     Indication: PRODUCT USED FOR UNKNOWN INDICATION
  4. LISINOPRIL AND HYDROCHLOROTHIAZIDE [Concomitant]
     Indication: PRODUCT USED FOR UNKNOWN INDICATION
  5. PRILOSEC [Concomitant]
     Indication: PRODUCT USED FOR UNKNOWN INDICATION
  6. AMITRIPTYLINE [Concomitant]
     Indication: PRODUCT USED FOR UNKNOWN INDICATION
  7. FORTAMET [Concomitant]
     Indication: PRODUCT USED FOR UNKNOWN INDICATION
  8. TESTOSTERONE [Concomitant]
     Indication: PRODUCT USED FOR UNKNOWN INDICATION
  9. SPIRONOLACTONE [Concomitant]
     Indication: PRODUCT USED FOR UNKNOWN INDICATION
  10. BROMOCRIPTINE [Concomitant]
     Indication: PITUITARY TUMOUR
  11. NIASPAN [Suspect]
     Indication: HYPERLIPIDAEMIA
     Dates: start: 20091201
  12. VITAMIN D3 [Concomitant]
     Indication: PRODUCT USED FOR UNKNOWN INDICATION

REACTIONS (13)
  - HYPOAESTHESIA [None]
  - HEADACHE [None]
  - PRURITUS [None]
  - NEPHROLITHIASIS [None]
  - NERVE INJURY [None]
  - FLUSHING [None]
  - BLOOD GLUCOSE INCREASED [None]
  - NERVOUSNESS [None]
  - PAIN [None]
  - BLOOD TRIGLYCERIDES INCREASED [None]
  - DIABETIC NEUROPATHY [None]
  - SARCOIDOSIS [None]
  - DYSPNOEA [None]
